FAERS Safety Report 4669328-4 (Version None)
Quarter: 2005Q2

REPORT INFORMATION
  Report Type: 
  Country: None (occurrence: None)
  Receive Date: 20050519
  Receipt Date: 20050506
  Transmission Date: 20051028
  Serious: Yes (Hospitalization, Other)
  Sender: FDA-Public Use
  Company Number: HQWYE589306MAY05

PATIENT
  Age: 36 Year
  Sex: Female

DRUGS (1)
  1. TRIONETTA (LEVONORGESTREL/ETHINYL ESTRADIOL, TABLET) [Suspect]
     Indication: ORAL CONTRACEPTION
     Dosage: 1 CAPSULE 1X PER 1 DAY
     Route: 048
     Dates: end: 20050326

REACTIONS (6)
  - DEEP VEIN THROMBOSIS [None]
  - ILIAC VEIN THROMBOSIS [None]
  - LABORATORY TEST ABNORMAL [None]
  - PELVIC VENOUS THROMBOSIS [None]
  - PROTEIN S DECREASED [None]
  - VENOUS STENOSIS [None]
